FAERS Safety Report 11541012 (Version 3)
Quarter: 2015Q4

REPORT INFORMATION
  Report Type: Spontaneous
  Country: US (occurrence: US)
  Receive Date: 20150923
  Receipt Date: 20151006
  Transmission Date: 20160304
  Serious: No
  Sender: FDA-Public Use
  Company Number: GXBR2015US002001

PATIENT
  Sex: Female
  Weight: 56.69 kg

DRUGS (1)
  1. EPLERENONE. [Suspect]
     Active Substance: EPLERENONE
     Indication: CHORIORETINOPATHY
     Dosage: UNK DF, UNK
     Route: 048
     Dates: start: 20150812

REACTIONS (1)
  - Drug ineffective [Unknown]
